FAERS Safety Report 8121437-3 (Version None)
Quarter: 2012Q1

REPORT INFORMATION
  Report Type: 
  Country: None (occurrence: None)
  Receive Date: 20120208
  Receipt Date: 20120206
  Transmission Date: 20120608
  Serious: No
  Sender: FDA-Public Use
  Company Number: US-PFIZER INC-2012033390

PATIENT
  Sex: Male
  Weight: 106.58 kg

DRUGS (2)
  1. CHANTIX [Suspect]
     Indication: SMOKING CESSATION THERAPY
     Dosage: UNK, AS PRESCRIBED
     Dates: start: 20120101
  2. CHANTIX [Suspect]
     Dosage: 1 MG, 2X/DAY

REACTIONS (2)
  - DIARRHOEA [None]
  - GASTROOESOPHAGEAL REFLUX DISEASE [None]
